FAERS Safety Report 4855743-2 (Version None)
Quarter: 2005Q4

REPORT INFORMATION
  Report Type: 
  Country: None (occurrence: None)
  Receive Date: 20051215
  Receipt Date: 20051215
  Transmission Date: 20060501
  Serious: Yes (Other)
  Sender: FDA-Public Use
  Company Number: None

PATIENT
  Age: 72 Year
  Sex: Female
  Weight: 50.8029 kg

DRUGS (3)
  1. SOLAGE [Suspect]
     Dosage: AS DIRECTED  2 TIMES A DAY TOPICAL  , 3 DOSES
     Route: 061
     Dates: start: 20051001
  2. THYROID TAB [Concomitant]
  3. PREMARIN [Concomitant]

REACTIONS (4)
  - APPLICATION SITE IRRITATION [None]
  - APPLICATION SITE REACTION [None]
  - NAUSEA [None]
  - SWELLING FACE [None]
